FAERS Safety Report 13530592 (Version 1)
Quarter: 2017Q2

REPORT INFORMATION
  Report Type: Spontaneous
  Country: US (occurrence: US)
  Receive Date: 20170509
  Receipt Date: 20170509
  Transmission Date: 20170830
  Serious: Yes (Hospitalization)
  Sender: FDA-Public Use
  Company Number: None

PATIENT
  Age: 55 Year
  Sex: Male

DRUGS (1)
  1. GLEEVEC [Suspect]
     Active Substance: IMATINIB MESYLATE

REACTIONS (7)
  - Tremor [None]
  - Carbon dioxide increased [None]
  - Peripheral swelling [None]
  - Feeling hot [None]
  - Fall [None]
  - Eye oedema [None]
  - Middle insomnia [None]

NARRATIVE: CASE EVENT DATE: 20170509
